FAERS Safety Report 6156409-1 (Version None)
Quarter: 2009Q2

REPORT INFORMATION
  Report Type: 
  Country: None (occurrence: None)
  Receive Date: 20090416
  Receipt Date: 20090407
  Transmission Date: 20091009
  Serious: No
  Sender: FDA-Public Use
  Company Number: US-JNJFOC-20090402212

PATIENT
  Sex: Male
  Weight: 68.04 kg

DRUGS (7)
  1. FENTANYL TRANSDERMAL SYSTEM [Suspect]
     Route: 062
  2. FENTANYL TRANSDERMAL SYSTEM [Suspect]
     Dosage: 100 MCG + 50 MCG PATCHES
     Route: 062
  3. FENTANYL TRANSDERMAL SYSTEM [Suspect]
     Dosage: 100UG/HR+50UG/HR
     Route: 062
  4. FENTANYL TRANSDERMAL SYSTEM [Suspect]
     Indication: PAIN
     Route: 062
  5. HYDROCODONE BITARTRATE [Concomitant]
     Indication: PAIN
     Dosage: 5/1500 MG - AS NEEDED
     Route: 048
  6. VALIUM [Concomitant]
     Indication: SLEEP DISORDER THERAPY
     Dosage: 10 MG - 2 TABLETS/NIGHT
     Route: 048
  7. FLAMAX [Concomitant]
     Indication: DYSURIA
     Route: 048

REACTIONS (7)
  - DRUG EFFECT DECREASED [None]
  - HYPERHIDROSIS [None]
  - INSOMNIA [None]
  - MEDICATION ERROR [None]
  - NIGHTMARE [None]
  - PAIN [None]
  - WITHDRAWAL SYNDROME [None]
